FAERS Safety Report 4588773-9 (Version None)
Quarter: 2005Q1

REPORT INFORMATION
  Report Type: 
  Country: None (occurrence: None)
  Receive Date: 20050216
  Receipt Date: 20050201
  Transmission Date: 20050727
  Serious: Yes (Other)
  Sender: FDA-Public Use
  Company Number: USA050187372

PATIENT
  Age: 14 Year
  Sex: Male
  Weight: 57 kg

DRUGS (1)
  1. STRATTERA [Suspect]
     Indication: ATTENTION DEFICIT/HYPERACTIVITY DISORDER
     Dosage: 80 MG DAY
     Dates: start: 20040601, end: 20050110

REACTIONS (3)
  - HEPATITIS [None]
  - INFECTIOUS MONONUCLEOSIS [None]
  - PLATELET COUNT DECREASED [None]
